FAERS Safety Report 6866326-7 (Version None)
Quarter: 2010Q3

REPORT INFORMATION
  Report Type: 
  Country: None (occurrence: None)
  Receive Date: 20100722
  Receipt Date: 20100708
  Transmission Date: 20110219
  Serious: Yes (Hospitalization, Other)
  Sender: FDA-Public Use
  Company Number: ES-RANBAXY-2010RR-34976

PATIENT
  Age: 68 Year
  Sex: Male

DRUGS (6)
  1. COTRIM [Suspect]
     Indication: NOCARDIOSIS
  2. CLARITHROMYCIN [Suspect]
  3. AMOXICILLIN AND CLAVULANATE POTASSIUM [Suspect]
  4. CIPROFLOXACIN HCL [Suspect]
  5. LEVOFLOXACIN [Suspect]
  6. IMIPENEM [Suspect]
     Indication: NOCARDIOSIS

REACTIONS (2)
  - DRUG RESISTANCE [None]
  - NOCARDIOSIS [None]
